FAERS Safety Report 19741376 (Version 3)
Quarter: 2021Q4

REPORT INFORMATION
  Report Type: Report from Study
  Country: US (occurrence: US)
  Receive Date: 20210824
  Receipt Date: 20211004
  Transmission Date: 20220303
  Serious: Yes (Hospitalization, Other)
  Sender: FDA-Public Use
  Company Number: US-BOEHRINGERINGELHEIM-2021-BI-100814

PATIENT
  Age: 81 Year
  Sex: Male

DRUGS (3)
  1. OFEV [Suspect]
     Active Substance: NINTEDANIB
     Indication: Idiopathic pulmonary fibrosis
     Dosage: 150MG BID
     Route: 048
     Dates: start: 20210421, end: 20210520
  2. OFEV [Suspect]
     Active Substance: NINTEDANIB
     Route: 048
     Dates: start: 202106, end: 20210726
  3. ELIQUIS [Suspect]
     Active Substance: APIXABAN
     Indication: Product used for unknown indication

REACTIONS (14)
  - Hypotension [Recovered/Resolved]
  - Hypotension [Recovered/Resolved]
  - Hip fracture [Recovered/Resolved]
  - Thrombosis [Recovered/Resolved]
  - Internal haemorrhage [Recovered/Resolved]
  - Diarrhoea [Not Recovered/Not Resolved]
  - Gastrointestinal haemorrhage [Unknown]
  - Malaise [Not Recovered/Not Resolved]
  - Fatigue [Not Recovered/Not Resolved]
  - Depression [Not Recovered/Not Resolved]
  - Hypersomnia [Not Recovered/Not Resolved]
  - Cognitive disorder [Not Recovered/Not Resolved]
  - Decreased appetite [Not Recovered/Not Resolved]
  - Food aversion [Not Recovered/Not Resolved]

NARRATIVE: CASE EVENT DATE: 20210501
